FAERS Safety Report 17467324 (Version 4)
Quarter: 2020Q2

REPORT INFORMATION
  Report Type: Spontaneous
  Country: US (occurrence: US)
  Receive Date: 20200227
  Receipt Date: 20200618
  Transmission Date: 20200713
  Serious: Yes (Other)
  Sender: FDA-Public Use
  Company Number: US-PFIZER INC-2020085037

PATIENT
  Age: 63 Year
  Sex: Female
  Weight: 73.5 kg

DRUGS (7)
  1. FOLIC ACID COMPLEX [Concomitant]
     Dosage: 3 MG, 1X/DAY
  2. IBP [IBUPROFEN] [Concomitant]
     Dosage: 800 MG, AS NEEDED (IBP 800 MG 1 PILL 3 TIMES A DAY AS NEEDED)
  3. FOLIC ACID COMPLEX [Concomitant]
     Dosage: 3 DF, DAILY [3 PILLS A DAY]
  4. XELJANZ XR [Suspect]
     Active Substance: TOFACITINIB CITRATE
     Indication: RHEUMATOID ARTHRITIS
     Dosage: 11 MG, 1X/DAY
     Route: 048
     Dates: start: 20170320, end: 202005
  5. TRAMADOL [TRAMADOL HYDROCHLORIDE] [Concomitant]
     Active Substance: TRAMADOL HYDROCHLORIDE
     Dosage: 6 DF, DAILY [6 PILLS A DAY]
  6. ALENDRONATE SODIUM. [Concomitant]
     Active Substance: ALENDRONATE SODIUM
     Dosage: 70 MG, WEEKLY (70 MG 1 PILL A WEEK)
  7. METHOTREXATE [METHOTREXATE SODIUM] [Concomitant]
     Active Substance: METHOTREXATE SODIUM
     Dosage: UNK, WEEKLY (4 PILLS ONE DAY A WEEK)

REACTIONS (18)
  - Tooth fracture [Unknown]
  - Nodule [Unknown]
  - Dry skin [Unknown]
  - Tooth abscess [Unknown]
  - Sinusitis [Unknown]
  - Urinary tract infection [Unknown]
  - Depressed mood [Unknown]
  - Fatigue [Unknown]
  - Feeling abnormal [Unknown]
  - Discomfort [Unknown]
  - Skin warm [Unknown]
  - Malaise [Unknown]
  - Pain [Unknown]
  - Arthralgia [Unknown]
  - Neck pain [Unknown]
  - Condition aggravated [Recovering/Resolving]
  - Emphysema [Unknown]
  - Asthenia [Unknown]

NARRATIVE: CASE EVENT DATE: 202005
